FAERS Safety Report 15285891 (Version 1)
Quarter: 2018Q3

REPORT INFORMATION
  Report Type: Spontaneous
  Country: US (occurrence: US)
  Receive Date: 20180816
  Receipt Date: 20180816
  Transmission Date: 20181010
  Serious: Yes (Other)
  Sender: FDA-Public Use
  Company Number: US-AMGEN-USASP2018111460

PATIENT
  Age: 59 Year
  Sex: Female

DRUGS (11)
  1. ATORVASTATIN [Concomitant]
     Active Substance: ATORVASTATIN
     Dosage: 40 MG, QD
  2. VERAMYST [Concomitant]
     Active Substance: FLUTICASONE FUROATE
     Dosage: UNK, AS NECESSARY
  3. PREDNISONE. [Concomitant]
     Active Substance: PREDNISONE
     Dosage: (ALTERNATE 4 AND 3 MG A DAY)
  4. ENBREL [Suspect]
     Active Substance: ETANERCEPT
     Dosage: UNK UNK, QWK
     Route: 065
     Dates: start: 2017
  5. CELEXA [Concomitant]
     Active Substance: CITALOPRAM HYDROBROMIDE
     Dosage: 20 MG, UNK
  6. ENBREL [Suspect]
     Active Substance: ETANERCEPT
     Indication: RHEUMATOID ARTHRITIS
     Dosage: UNK UNK, QWK
     Route: 065
     Dates: end: 2017
  7. ETODOLAC. [Concomitant]
     Active Substance: ETODOLAC
     Dosage: 400 MG, BID
  8. COQ [Concomitant]
     Dosage: UNK
  9. MAGNESIUM [Concomitant]
     Active Substance: MAGNESIUM
     Dosage: 500 MG, QD
  10. RESTASIS [Concomitant]
     Active Substance: CYCLOSPORINE
     Dosage: UNK UNK, BID
  11. PARAFON FORTE [Concomitant]
     Active Substance: CHLORZOXAZONE
     Dosage: UNK, AS NECESSARY

REACTIONS (5)
  - Incorrect dose administered by device [Unknown]
  - Pain [Unknown]
  - Drug effect decreased [Unknown]
  - Swelling [Unknown]
  - Cataract operation [Unknown]

NARRATIVE: CASE EVENT DATE: 201806
